FAERS Safety Report 13355347 (Version 1)
Quarter: 2017Q1

REPORT INFORMATION
  Report Type: Spontaneous
  Country: US (occurrence: US)
  Receive Date: 20170321
  Receipt Date: 20170321
  Transmission Date: 20170429
  Serious: Yes (Disabling)
  Sender: FDA-Public Use
  Company Number: None

PATIENT
  Age: 51 Year
  Sex: Female
  Weight: 88.45 kg

DRUGS (16)
  1. LAMOTRIGINE. [Concomitant]
     Active Substance: LAMOTRIGINE
  2. HYDROXYZINE PAM [Concomitant]
     Active Substance: HYDROXYZINE PAMOATE
  3. PRISTIQ EXTENDED-RELEASE [Concomitant]
     Active Substance: DESVENLAFAXINE SUCCINATE
  4. BISOPROLOL [Concomitant]
     Active Substance: BISOPROLOL
  5. TYLENOL [Concomitant]
     Active Substance: ACETAMINOPHEN
  6. ALEVE [Concomitant]
     Active Substance: NAPROXEN SODIUM
  7. ZOLPIDEM [Concomitant]
     Active Substance: ZOLPIDEM\ZOLPIDEM TARTRATE
  8. ATIVAN [Concomitant]
     Active Substance: LORAZEPAM
  9. HYOSCYAMINE ER [Suspect]
     Active Substance: HYOSCYAMINE SULFATE
     Indication: ABDOMINAL PAIN UPPER
     Dosage: ?          QUANTITY:ORIG,;?
     Dates: start: 20170306, end: 20170306
  10. HYOSCYAMINE ER [Suspect]
     Active Substance: HYOSCYAMINE SULFATE
     Indication: IMPAIRED GASTRIC EMPTYING
     Dosage: ?          QUANTITY:ORIG,;?
     Dates: start: 20170306, end: 20170306
  11. GABAPENTIN. [Concomitant]
     Active Substance: GABAPENTIN
  12. LATUDA [Concomitant]
     Active Substance: LURASIDONE HYDROCHLORIDE
  13. TIZANIDINE. [Concomitant]
     Active Substance: TIZANIDINE
  14. OMEPRAZOLE. [Concomitant]
     Active Substance: OMEPRAZOLE
  15. BISOPROLOL-HCTZ [Concomitant]
  16. PERCOGESIC ORIGINAL STRENGTH [Concomitant]
     Active Substance: ACETAMINOPHEN\DIPHENHYDRAMINE

REACTIONS (11)
  - Muscle spasms [None]
  - Headache [None]
  - Flushing [None]
  - Hyperacusis [None]
  - Insomnia [None]
  - Anxiety [None]
  - Nervousness [None]
  - Pruritus [None]
  - Motion sickness [None]
  - Paranoia [None]
  - Muscle rigidity [None]

NARRATIVE: CASE EVENT DATE: 20170306
